FAERS Safety Report 5927068-5 (Version None)
Quarter: 2008Q4

REPORT INFORMATION
  Report Type: 
  Country: None (occurrence: None)
  Receive Date: 20081022
  Receipt Date: 20081017
  Transmission Date: 20090506
  Serious: Yes (Life-Threatening, Other)
  Sender: FDA-Public Use
  Company Number: US-B.I. PHARMACEUTICALS,INC./RIDGEFIELD-2008-BP-01536BP

PATIENT
  Age: 26 Year
  Sex: Female

DRUGS (6)
  1. MIRAPEX [Suspect]
     Indication: RESTLESS LEGS SYNDROME
     Dosage: .125MG
     Route: 048
     Dates: start: 20070122, end: 20080124
  2. ATIVAN [Concomitant]
     Dosage: 2MG
  3. TRAZODONE HCL [Concomitant]
     Dosage: 150MG
  4. BUSPAR [Concomitant]
     Dosage: 40MG
  5. LAMICTAL [Concomitant]
     Dosage: 200MG
  6. LEXAPRO [Concomitant]
     Dosage: 30MG

REACTIONS (3)
  - HALLUCINATION [None]
  - SUICIDAL IDEATION [None]
  - SUICIDE ATTEMPT [None]
